FAERS Safety Report 4455166-4 (Version None)
Quarter: 2004Q3

REPORT INFORMATION
  Report Type: 
  Country: None (occurrence: None)
  Receive Date: 20040917
  Receipt Date: 20040906
  Transmission Date: 20050211
  Serious: Yes (Hospitalization, Other)
  Sender: FDA-Public Use
  Company Number: 2004063482

PATIENT
  Age: 49 Year
  Sex: Male

DRUGS (2)
  1. ZITHROMAX [Suspect]
     Indication: PNEUMONIA
     Dosage: 5000 MG (1 D), ORAL
     Route: 048
     Dates: start: 20040611, end: 20040613
  2. CEFOTIAM HYDROCHLORIDE [Suspect]
     Indication: PNEUMONIA
     Dosage: 2 GRAM (1 D), INTRAVENOUS
     Route: 042
     Dates: start: 20040610

REACTIONS (3)
  - DIALYSIS [None]
  - RENAL FAILURE ACUTE [None]
  - RENAL TUBULAR NECROSIS [None]
